FAERS Safety Report 8934366 (Version 1)
Quarter: 2012Q4

REPORT INFORMATION
  Report Type: Report from Study
  Country: GB (occurrence: GB)
  Receive Date: 20121129
  Receipt Date: 20121129
  Transmission Date: 20130627
  Serious: Yes (Other)
  Sender: FDA-Public Use
  Company Number: GB-ROCHE-1160590

PATIENT
  Sex: Male
  Weight: 76 kg

DRUGS (2)
  1. RITUXIMAB [Suspect]
     Indication: RHEUMATOID ARTHRITIS
     Dosage: date of last dose prior to SAE: 14/Jun/2011
     Route: 065
     Dates: start: 20080205
  2. METHOTREXATE [Concomitant]

REACTIONS (1)
  - Skin cancer [Unknown]
